FAERS Safety Report 25993677 (Version 1)
Quarter: 2025Q4

REPORT INFORMATION
  Report Type: Spontaneous
  Country: US (occurrence: US)
  Receive Date: 20251104
  Receipt Date: 20251104
  Transmission Date: 20260118
  Serious: No
  Sender: LEO PHARM
  Company Number: US-LEO Pharma-383922

PATIENT
  Age: 45 Year
  Sex: Female

DRUGS (1)
  1. ADBRY [Suspect]
     Active Substance: TRALOKINUMAB-LDRM
     Indication: Eczema
     Dosage: 600 MG ONCE??ADBRY 300 MG/2 ML PEN, INJECT 2 PENS (600MG) UNDER THE SKIN ON DAY 1 (10/17/2025),?THEN
     Route: 058
     Dates: start: 20251017

REACTIONS (1)
  - Injection site pain [Unknown]

NARRATIVE: CASE EVENT DATE: 20251017
